FAERS Safety Report 14166474 (Version 1)
Quarter: 2017Q4

REPORT INFORMATION
  Report Type: Spontaneous
  Country: FR (occurrence: FR)
  Receive Date: 20171107
  Receipt Date: 20171107
  Transmission Date: 20180321
  Serious: Yes (Hospitalization)
  Sender: FDA-Public Use
  Company Number: FR-ROCHE-2016583

PATIENT
  Age: 64 Year
  Sex: Female

DRUGS (12)
  1. MABTHERA [Suspect]
     Active Substance: RITUXIMAB
     Indication: PRODUCT USED FOR UNKNOWN INDICATION
     Route: 042
     Dates: start: 201502, end: 20170503
  2. PLAQUENIL [Concomitant]
     Active Substance: HYDROXYCHLOROQUINE SULFATE
  3. OMEPRAZOLE. [Concomitant]
     Active Substance: OMEPRAZOLE
  4. CALCIDOSE (FRANCE) [Concomitant]
     Active Substance: CALCIUM CARBONATE
  5. MONOTILDIEM [Concomitant]
     Active Substance: DILTIAZEM
  6. DOLIPRANE [Concomitant]
     Active Substance: ACETAMINOPHEN
  7. ZARZIO [Concomitant]
     Active Substance: FILGRASTIM
     Dosage: 30 MU
     Route: 065
  8. VANCOMYCIN [Concomitant]
     Active Substance: VANCOMYCIN
     Route: 065
     Dates: start: 20170726, end: 20170729
  9. AUGMENTIN [Suspect]
     Active Substance: AMOXICILLIN\CLAVULANATE POTASSIUM
     Indication: ANTIBIOTIC THERAPY
     Route: 048
     Dates: start: 20170722, end: 20170725
  10. RAMIPRIL. [Concomitant]
     Active Substance: RAMIPRIL
  11. ZYMAD [Concomitant]
     Active Substance: CHOLECALCIFEROL
  12. TAZOCILLIN [Concomitant]
     Active Substance: PIPERACILLIN SODIUM\TAZOBACTAM SODIUM
     Route: 065
     Dates: start: 20170726, end: 20170803

REACTIONS (3)
  - Lymphopenia [Recovered/Resolved]
  - Agranulocytosis [Recovered/Resolved]
  - C-reactive protein increased [Recovering/Resolving]

NARRATIVE: CASE EVENT DATE: 20170725
